FAERS Safety Report 19141156 (Version 2)
Quarter: 2021Q2

REPORT INFORMATION
  Report Type: Spontaneous
  Country: US (occurrence: US)
  Receive Date: 20210415
  Receipt Date: 20210518
  Transmission Date: 20210717
  Serious: No
  Sender: FDA-Public Use
  Company Number: US-MATRIXX INITIATIVES, INC.-2109373

PATIENT
  Age: 36 Year
  Sex: Female
  Weight: 77.27 kg

DRUGS (1)
  1. ZICAM COLD REMEDY NASAL SWABS (HOMEOPATHICS) [Suspect]
     Active Substance: HOMEOPATHICS\ZINC ACETATE\ZINC GLUCONATE
     Route: 045
     Dates: start: 20210407, end: 20210407

REACTIONS (1)
  - Ageusia [Recovered/Resolved]
